FAERS Safety Report 16460465 (Version 1)
Quarter: 2019Q2

REPORT INFORMATION
  Report Type: Spontaneous
  Country: US (occurrence: US)
  Receive Date: 20190620
  Receipt Date: 20190620
  Transmission Date: 20190711
  Serious: Yes (Other)
  Sender: FDA-Public Use
  Company Number: US-FRESENIUS KABI-FK201906788

PATIENT
  Age: 23 Year
  Sex: Male

DRUGS (3)
  1. ETOPOSIDE (MANUFACTURER UNKNOWN) [Suspect]
     Active Substance: ETOPOSIDE
     Indication: LEUKAEMIA CUTIS
     Dosage: PER AALL01P2 BLOCK 2
     Route: 065
  2. DEXAMETHASONE INJECTION (MANUFACTURER UNKNOWN) [Suspect]
     Active Substance: DEXAMETHASONE
     Indication: LEUKAEMIA CUTIS
     Route: 065
  3. CYCLOPHOSPHAMIDE. [Suspect]
     Active Substance: CYCLOPHOSPHAMIDE
     Indication: LEUKAEMIA CUTIS
     Dosage: PER AALL01P2 BLOCK 2
     Route: 065

REACTIONS (5)
  - Cardiomyopathy [Unknown]
  - Klebsiella sepsis [Unknown]
  - Neutropenia [Recovered/Resolved]
  - Multi-organ disorder [Unknown]
  - Fusarium infection [Recovering/Resolving]
